FAERS Safety Report 22229844 (Version 2)
Quarter: 2023Q2

REPORT INFORMATION
  Report Type: Report from Study
  Country: US (occurrence: US)
  Receive Date: 20230419
  Receipt Date: 20230523
  Transmission Date: 20230721
  Serious: Yes (Death, Other)
  Sender: FDA-Public Use
  Company Number: US-PFIZER INC-PV202300067431

PATIENT

DRUGS (6)
  1. VINCRISTINE SULFATE [Suspect]
     Active Substance: VINCRISTINE SULFATE
     Indication: Angiocentric lymphoma
     Dosage: 0.4 MG/M2 PER DAY AS A CONTINUOUS INTRAVENOUS INFUSION FROM DAY 1 TO DAY 4
     Route: 041
  2. DOXORUBICIN HYDROCHLORIDE [Suspect]
     Active Substance: DOXORUBICIN HYDROCHLORIDE
     Indication: Angiocentric lymphoma
     Dosage: 10 MG/M2 PER DAY AS A CONTINUOUS INTRAVENOUS INFUSION FROM DAY 1 TO DAY 4
     Route: 041
  3. RITUXAN [Suspect]
     Active Substance: RITUXIMAB
     Indication: Angiocentric lymphoma
     Dosage: 375 MG/M2, INTRAVENOUS ON DAY 1 FOR RITUXIMAB
     Route: 042
  4. ETOPOSIDE [Suspect]
     Active Substance: ETOPOSIDE
     Indication: Angiocentric lymphoma
     Dosage: 50 MG/M2 PER DAY AS A CONTINUOUS INTRAVENOUS INFUSION FROM DAY 1 TO DAY 4
     Route: 041
  5. PREDNISONE [Suspect]
     Active Substance: PREDNISONE
     Indication: Angiocentric lymphoma
     Dosage: 60 MG/M2 TWICE DAILY BY MOUTH FROM DAY 1 TO DAY 5
     Route: 048
  6. CYCLOPHOSPHAMIDE [Suspect]
     Active Substance: CYCLOPHOSPHAMIDE
     Indication: Angiocentric lymphoma
     Dosage: 750 MG/M2 INTRAVENOUS ON DAY 5
     Route: 042

REACTIONS (1)
  - Infection [Fatal]
